FAERS Safety Report 24536166 (Version 1)
Quarter: 2024Q4

REPORT INFORMATION
  Report Type: Report from Study
  Country: US (occurrence: US)
  Receive Date: 20241022
  Receipt Date: 20241022
  Transmission Date: 20250115
  Serious: Yes (Other)
  Sender: JAZZ
  Company Number: US-JAZZ PHARMACEUTICALS-2024-US-012357

PATIENT
  Sex: Female

DRUGS (5)
  1. XYWAV [Suspect]
     Active Substance: CALCIUM OXYBATE\MAGNESIUM OXYBATE\POTASSIUM OXYBATE\SODIUM OXYBATE
     Indication: Hypersomnia
     Dosage: UNK
  2. GLUTEN [Suspect]
     Active Substance: WHEAT GLUTEN
     Indication: Product used for unknown indication
     Dosage: UNK
  3. YAZ [DROSPIRENONE;ETHINYLESTRADIOL] [Concomitant]
     Indication: Product used for unknown indication
     Dosage: 28 TABLET
     Dates: start: 20231117
  4. ARMOUR THYROID [Concomitant]
     Active Substance: THYROID, PORCINE
     Indication: Product used for unknown indication
     Dosage: UNK
     Dates: start: 20240306
  5. ARMODAFINIL [Concomitant]
     Active Substance: ARMODAFINIL
     Indication: Product used for unknown indication
     Dosage: UNK
     Dates: start: 20240312

REACTIONS (1)
  - Coeliac disease [Unknown]
